FAERS Safety Report 4856012-7 (Version None)
Quarter: 2005Q4

REPORT INFORMATION
  Report Type: 
  Country: None (occurrence: None)
  Receive Date: 20051216
  Receipt Date: 20051128
  Transmission Date: 20060501
  Serious: Yes (Life-Threatening, Other)
  Sender: FDA-Public Use
  Company Number: JP-ABBOTT-05P-087-0318127-00

PATIENT
  Age: 75 Year
  Sex: Male
  Weight: 49 kg

DRUGS (6)
  1. SEVOFLURANE [Suspect]
     Indication: ANAESTHESIA
     Route: 055
  2. THIOPENTAL SODIUM [Suspect]
     Indication: INDUCTION OF ANAESTHESIA
     Route: 042
  3. VECURONIUM BROMIDE [Suspect]
     Indication: INDUCTION OF ANAESTHESIA
     Route: 042
  4. FAMOTIDINE [Concomitant]
     Indication: PREMEDICATION
     Route: 030
  5. ATROPINE [Concomitant]
     Indication: ANAESTHETIC PREMEDICATION
     Route: 030
  6. PETHIDINE [Concomitant]
     Indication: ANAESTHETIC PREMEDICATION
     Route: 030

REACTIONS (3)
  - ATRIOVENTRICULAR BLOCK COMPLETE [None]
  - CIRCULATORY COLLAPSE [None]
  - VENTRICULAR EXTRASYSTOLES [None]
